FAERS Safety Report 8895872 (Version 3)
Quarter: 2013Q1

REPORT INFORMATION
  Report Type: Report from Study
  Country: FR (occurrence: FR)
  Receive Date: 20121108
  Receipt Date: 20130228
  Transmission Date: 20140127
  Serious: Yes (Hospitalization)
  Sender: FDA-Public Use
  Company Number: FR-TEVA-368538USA

PATIENT
  Age: 64 Year
  Sex: Male
  Weight: 102 kg

DRUGS (28)
  1. TREANDA [Suspect]
     Indication: B-CELL LYMPHOMA
     Dosage: UID/QD
     Route: 042
     Dates: start: 20120321
  2. TREANDA [Suspect]
     Dosage: UID/QD
     Route: 042
     Dates: start: 20120618, end: 20120713
  3. TREANDA [Suspect]
     Dosage: UID/QD
     Route: 042
     Dates: start: 20120322
  4. TREANDA [Suspect]
     Dosage: UID/QD
     Route: 042
     Dates: start: 20120420
  5. TREANDA [Suspect]
     Dosage: UID/QD
     Route: 042
     Dates: start: 20120421
  6. TREANDA [Suspect]
     Dosage: UID/QD
     Route: 042
     Dates: start: 20120518
  7. TREANDA [Suspect]
     Dosage: UID/QD
     Route: 042
     Dates: start: 20120519
  8. TREANDA [Suspect]
     Dosage: UID/QD
     Route: 042
     Dates: start: 20120618
  9. TREANDA [Suspect]
     Dosage: UID/QD
     Route: 042
     Dates: start: 20120619
  10. RITUXIMAB [Suspect]
     Indication: B-CELL LYMPHOMA
     Dosage: UID/QD
     Route: 042
     Dates: start: 20120321
  11. RITUXIMAB [Suspect]
     Dosage: UID/QD
     Route: 058
     Dates: start: 20120420
  12. RITUXIMAB [Suspect]
     Dosage: UID/QD
     Route: 058
     Dates: start: 20120618
  13. RITUXIMAB [Suspect]
     Dosage: UID/QD
     Route: 058
     Dates: start: 20120518
  14. ACEBUTOLOL [Concomitant]
     Dosage: 200 MILLIGRAM DAILY;
  15. ARIXTRA [Concomitant]
     Indication: THROMBOSIS
     Dates: start: 20120326
  16. ARIXTRA [Concomitant]
     Indication: PULMONARY EMBOLISM
  17. SOLU-MEDROL [Concomitant]
     Dates: start: 20120321
  18. COAPROVEL [Concomitant]
  19. BETNEVAL [Concomitant]
     Dosage: ONCE DAILY
     Dates: start: 20120321, end: 20120903
  20. BETNEVAL [Concomitant]
     Dates: start: 20120626, end: 20120713
  21. BETNEVAL [Concomitant]
     Dates: start: 20120626
  22. CETRIZINE [Concomitant]
     Indication: ERYTHEMA
     Dates: start: 20120321, end: 20120713
  23. CETRIZINE [Concomitant]
     Dosage: 10 MILLIGRAM DAILY;
     Dates: start: 20120626
  24. LOVENOX [Concomitant]
     Dates: start: 20120419
  25. DOLIPRANE [Concomitant]
     Dates: start: 20120321, end: 20120618
  26. POLARAMINE [Concomitant]
     Dates: start: 20120321
  27. ONDANSETRON [Concomitant]
     Dosage: 8MG/4ML
     Dates: start: 20120518, end: 20120519
  28. ENOXAPARIN SODIUM [Concomitant]

REACTIONS (3)
  - Drug reaction with eosinophilia and systemic symptoms [Not Recovered/Not Resolved]
  - Skin toxicity [Not Recovered/Not Resolved]
  - Toxic skin eruption [Recovered/Resolved]
